FAERS Safety Report 9626961 (Version 1)
Quarter: 2013Q4

REPORT INFORMATION
  Report Type: Spontaneous
  Country: US (occurrence: US)
  Receive Date: 20131016
  Receipt Date: 20131016
  Transmission Date: 20140711
  Serious: Yes (Other)
  Sender: FDA-Public Use
  Company Number: PHEH2013US021123

PATIENT
  Sex: 0

DRUGS (1)
  1. TASIGNA [Suspect]

REACTIONS (6)
  - Nightmare [Unknown]
  - Sleep disorder [Unknown]
  - Insomnia [Unknown]
  - Proctalgia [Unknown]
  - Fatigue [Unknown]
  - Tachycardia [Unknown]
